FAERS Safety Report 8597384-X (Version None)
Quarter: 2012Q3

REPORT INFORMATION
  Report Type: 
  Country: None (occurrence: None)
  Receive Date: 20120801
  Receipt Date: 20120717
  Transmission Date: 20120928
  Serious: Yes (Death, Other)
  Sender: FDA-Public Use
  Company Number: APL-2012-00114

PATIENT
  Age: 45 Year
  Sex: Female

DRUGS (5)
  1. FENTANYL [Suspect]
     Indication: ANALGESIC THERAPY
     Dosage: 100 UG, UNK 200 UG, UNK; UNKNOWN
  2. METOCLOPRAMIDE [Concomitant]
  3. MIDAZOLAM HCL [Concomitant]
  4. DIAMORPHINE (DIAMORPHINE) [Concomitant]
  5. KETAMINE HCL [Concomitant]

REACTIONS (4)
  - NEOPLASM MALIGNANT [None]
  - CONDITION AGGRAVATED [None]
  - TERMINAL STATE [None]
  - GENERAL PHYSICAL HEALTH DETERIORATION [None]
